FAERS Safety Report 8308702-1 (Version None)
Quarter: 2012Q1

REPORT INFORMATION
  Report Type: 
  Country: None (occurrence: None)
  Receive Date: 20120327
  Receipt Date: 20110412
  Transmission Date: 20120608
  Serious: Yes (Hospitalization)
  Sender: FDA-Public Use
  Company Number: PHHY2011US11638

PATIENT
  Age: 65 Year
  Sex: Male
  Weight: 106 kg

DRUGS (5)
  1. DIGOXIN [Concomitant]
  2. NADOLOL [Concomitant]
  3. ACYCLOVIR [Concomitant]
  4. SOTALOL HCL [Concomitant]
  5. GLEEVEC [Suspect]
     Indication: ACUTE LYMPHOCYTIC LEUKAEMIA
     Dosage: 400 MG, QD, ORAL
     Route: 048
     Dates: start: 20101113

REACTIONS (2)
  - ATRIAL FIBRILLATION [None]
  - NAUSEA [None]
